FAERS Safety Report 7003777-4 (Version None)
Quarter: 2010Q3

REPORT INFORMATION
  Report Type: 
  Country: None (occurrence: None)
  Receive Date: 20100917
  Receipt Date: 20100908
  Transmission Date: 20110219
  Serious: Yes (Death)
  Sender: FDA-Public Use
  Company Number: AXC-2010-000233

PATIENT
  Age: 5 Month

DRUGS (6)
  1. SUCRALFATE [Suspect]
     Indication: PRODUCT USED FOR UNKNOWN INDICATION
     Dosage: 500 MG, SINGLE, INTRAVENOUS
     Route: 042
  2. CARBOPOL 934P RESIN (CARBOPOL 934P RESIN) [Concomitant]
  3. GELATIN POWDER (GELATIN POWDER) [Concomitant]
  4. POTASSIUM HYDROXIDE (POTASSIUM HYDROXIDE) [Concomitant]
  5. FRUIT FLAVORED SYRUP (FRUIT FLAVORED SYRUP) SYRUP [Concomitant]
  6. SODIUM BENZOATE (SODIUM BENZOATE) [Concomitant]

REACTIONS (6)
  - ACIDOSIS [None]
  - BRAIN INJURY [None]
  - CARDIO-RESPIRATORY ARREST [None]
  - DRUG TOXICITY [None]
  - EMBOLISM ARTERIAL [None]
  - INCORRECT ROUTE OF DRUG ADMINISTRATION [None]
